FAERS Safety Report 6759899-6 (Version None)
Quarter: 2010Q2

REPORT INFORMATION
  Report Type: 
  Country: None (occurrence: None)
  Receive Date: 20100604
  Receipt Date: 20100520
  Transmission Date: 20101027
  Serious: Yes (Other)
  Sender: FDA-Public Use
  Company Number: AUR-APL-2010-01043

PATIENT
  Age: 55 Year
  Sex: Female

DRUGS (23)
  1. GABAPENTIN [Suspect]
     Indication: DIABETIC NEUROPATHY
     Dosage: 2 CAPSULES, TID, ORAL
     Route: 048
     Dates: start: 20040101
  2. METFORMIN [Suspect]
     Indication: DIABETES MELLITUS
     Dosage: 500MG, DAILY, ORAL
     Route: 048
  3. SIMVASTATIN [Suspect]
     Dosage: ORAL
     Route: 048
  4. ZYRTEC [Suspect]
     Indication: HYPERSENSITIVITY
     Dosage: 10 MG - DAILY - ORAL
     Route: 048
  5. VICODIN [Suspect]
     Indication: ARTHRITIS
     Dosage: 7.5MG/325MG - Q4H - ORAL
     Route: 048
     Dates: end: 20060101
  6. ZANAFLEX [Suspect]
     Indication: MUSCLE SPASMS
     Dosage: 2MG - BID - ORAL
     Route: 048
     Dates: end: 20090101
  7. VALSARTAN [Suspect]
     Indication: HYPERTENSION
     Dosage: 160 MG - DAILY - ORAL
     Route: 048
     Dates: end: 20020101
  8. BUPROPION HCL [Suspect]
     Indication: DEPRESSION
     Dosage: 300MG - DAILY - ORAL
     Route: 048
  9. LOZOL [Suspect]
     Indication: FLUID RETENTION
     Dosage: 1.25MG - DAILY - ORAL
     Route: 048
     Dates: end: 20020101
  10. JANUMET [Suspect]
     Indication: DIABETES MELLITUS
     Dosage: 50/500MG - DAILY - ORAL
     Route: 048
  11. KLONOPIN [Suspect]
     Indication: ANXIETY
     Dosage: 0.5MG - BID - ORAL
     Route: 048
  12. KLONOPIN [Suspect]
     Indication: PANIC ATTACK
     Dosage: 0.5MG - BID - ORAL
     Route: 048
  13. PRILOSEC [Suspect]
     Indication: GASTROOESOPHAGEAL REFLUX DISEASE
     Dosage: 20MG - BID - ORAL
     Route: 048
  14. CARAFATE [Suspect]
     Indication: GASTROOESOPHAGEAL REFLUX DISEASE
     Dosage: 1G - BID - ORAL
     Route: 048
  15. AGGRENOX [Suspect]
     Indication: ARTERIAL DISORDER
     Dosage: BID - ORAL
     Route: 048
     Dates: start: 20091201
  16. FLONASE [Suspect]
     Indication: HYPERSENSITIVITY
     Dosage: 2 SPRAYS - DAILY - PER NOSTRIL
     Dates: start: 20091201
  17. FLOVENT [Suspect]
     Indication: ASTHMA
     Dosage: 2 PUFFS - BID
  18. VENTOLIN [Suspect]
     Indication: ASTHMA
     Dosage: 2 PUFFS - Q2H - ORAL
     Route: 048
  19. IMITREX [Suspect]
     Indication: MIGRAINE
     Dosage: 100MG - PRN - ORAL
     Route: 048
  20. NITROLINGUAL [Suspect]
     Indication: CHEST PAIN
     Dosage: 0.4MG SPRAY - PRN - ORAL
     Route: 048
  21. EPIPEN [Suspect]
     Indication: HYPERSENSITIVITY
     Dosage: TRANSDERMAL
     Route: 062
  22. LORTAB [Suspect]
     Dosage: ORAL
     Route: 048
  23. MULTI-VITAMINS [Suspect]
     Dosage: ORAL
     Route: 048

REACTIONS (3)
  - ARTERIAL DISORDER [None]
  - ILL-DEFINED DISORDER [None]
  - MEMORY IMPAIRMENT [None]
